FAERS Safety Report 5355314-8 (Version None)
Quarter: 2007Q2

REPORT INFORMATION
  Report Type: 
  Country: None (occurrence: None)
  Receive Date: 20070611
  Receipt Date: 20070530
  Transmission Date: 20071010
  Serious: Yes (Other)
  Sender: FDA-Public Use
  Company Number: CHPA2007US06483

PATIENT
  Age: 54 Year
  Sex: Female

DRUGS (2)
  1. PRIVATE LABEL (NCH) (NICOTINE) TABLET-THERAPEUTIC-SYSTEM [Suspect]
     Indication: SMOKING CESSATION THERAPY
     Dosage: SEE IMAGE
     Route: 062
  2. NICOTINE [Suspect]
     Indication: SMOKING CESSATION THERAPY
     Dosage: 14 MG, TRANSDERMAL
     Route: 062
     Dates: start: 20070530, end: 20070530

REACTIONS (8)
  - ANGINA PECTORIS [None]
  - ANXIETY [None]
  - CONCOMITANT DISEASE AGGRAVATED [None]
  - DYSPNOEA [None]
  - HYPERTENSION [None]
  - INSOMNIA [None]
  - PRURITUS [None]
  - TREATMENT NONCOMPLIANCE [None]
